FAERS Safety Report 5767688-4 (Version None)
Quarter: 2008Q2

REPORT INFORMATION
  Report Type: 
  Country: None (occurrence: None)
  Receive Date: 20080609
  Receipt Date: 20080527
  Transmission Date: 20081010
  Serious: Yes (Death)
  Sender: FDA-Public Use
  Company Number: 2008AL005923

PATIENT
  Age: 84 Year
  Sex: Female
  Weight: 45.3597 kg

DRUGS (9)
  1. DIGOXIN [Suspect]
     Indication: ATRIAL FIBRILLATION
     Dosage: .25MG PO DAILY; 2-3 YEARS
     Route: 048
  2. PREMPRO [Concomitant]
  3. LEVOTHYROXINE SODIUM [Concomitant]
  4. TOPROL-XL [Concomitant]
  5. SINIMET [Concomitant]
  6. ASPIRIN [Concomitant]
  7. ZOLOFT [Concomitant]
  8. CRESTOR [Concomitant]
  9. ARICEPT [Concomitant]

REACTIONS (1)
  - CEREBROVASCULAR ACCIDENT [None]
